FAERS Safety Report 9554208 (Version 2)
Quarter: 2013Q3

REPORT INFORMATION
  Report Type: Spontaneous
  Country: US (occurrence: US)
  Receive Date: 20130925
  Receipt Date: 20130925
  Transmission Date: 20140515
  Serious: No
  Sender: FDA-Public Use
  Company Number: US-DYAX CORP.-2012DX000145

PATIENT
  Age: 50 Year
  Sex: Female
  Weight: 68.1 kg

DRUGS (3)
  1. KALBITOR [Suspect]
     Indication: HEREDITARY ANGIOEDEMA
     Route: 058
     Dates: start: 20120626, end: 20120626
  2. KALBITOR [Suspect]
     Route: 058
     Dates: start: 201111
  3. HYDROCHLOROTHIAZIDE [Suspect]
     Indication: HYPERTENSION
     Route: 048
     Dates: start: 20120625, end: 20120626

REACTIONS (7)
  - Hypertension [Not Recovered/Not Resolved]
  - Dizziness [Recovered/Resolved]
  - Feeling abnormal [Recovered/Resolved]
  - Flushing [Recovered/Resolved]
  - Feeling jittery [Recovered/Resolved]
  - Muscle spasms [Recovered/Resolved]
  - Hereditary angioedema [Recovered/Resolved]
